FAERS Safety Report 24006943 (Version 2)
Quarter: 2024Q3

REPORT INFORMATION
  Report Type: Spontaneous
  Country: JP (occurrence: JP)
  Receive Date: 20240624
  Receipt Date: 20240706
  Transmission Date: 20241016
  Serious: Yes (Hospitalization)
  Sender: TEVA
  Company Number: JP-TEVA-VS-3211439

PATIENT
  Age: 67 Year
  Sex: Female

DRUGS (2)
  1. PREDNISOLONE [Suspect]
     Active Substance: PREDNISOLONE
     Indication: Lupus cystitis
     Route: 065
  2. MYCOPHENOLATE MOFETIL [Concomitant]
     Active Substance: MYCOPHENOLATE MOFETIL
     Indication: Lupus cystitis
     Route: 065

REACTIONS (5)
  - Bacteriuria [Unknown]
  - Urinary bladder atrophy [Unknown]
  - Escherichia infection [Unknown]
  - Pyelonephritis acute [Unknown]
  - Bladder perforation [Unknown]
